FAERS Safety Report 9162602 (Version 2)
Quarter: 2014Q1

REPORT INFORMATION
  Report Type: Spontaneous
  Country: US (occurrence: US)
  Receive Date: 20130314
  Receipt Date: 20140130
  Transmission Date: 20141002
  Serious: Yes (Other)
  Sender: FDA-Public Use
  Company Number: US-AMGEN-USASP2013017144

PATIENT
  Age: 1 Year
  Sex: Female
  Weight: 3.4 kg

DRUGS (2)
  1. ENBREL [Suspect]
     Indication: PRODUCT USED FOR UNKNOWN INDICATION
     Dosage: 50 MG, QWK
     Route: 064
     Dates: start: 20040901
  2. ZOFRAN                             /00955301/ [Concomitant]
     Indication: NAUSEA
     Dosage: 4 MG, PRN
     Route: 064
     Dates: start: 20120601, end: 20121001

REACTIONS (5)
  - Oxygen saturation decreased [Unknown]
  - Hypotonia [Unknown]
  - Gastrooesophageal reflux disease [Unknown]
  - Bronchiolitis [Unknown]
  - Upper respiratory tract infection [Unknown]
